FAERS Safety Report 20944682 (Version 1)
Quarter: 2022Q2

REPORT INFORMATION
  Report Type: Spontaneous
  Country: US (occurrence: None)
  Receive Date: 20220609
  Receipt Date: 20220609
  Transmission Date: 20220721
  Serious: No
  Sender: FDA-Public Use
  Company Number: None

PATIENT
  Sex: Male

DRUGS (1)
  1. DUPIXENT [Suspect]
     Active Substance: DUPILUMAB
     Indication: Dermatitis atopic
     Dosage: 300 MG EVERY TOHER WEEK SUBCUTANEOUS
     Route: 058
     Dates: start: 20190920

REACTIONS (4)
  - Injection site pain [None]
  - Incorrect dose administered by device [None]
  - Device leakage [None]
  - Therapy interrupted [None]
